FAERS Safety Report 6828052-X (Version None)
Quarter: 2010Q3

REPORT INFORMATION
  Report Type: 
  Country: None (occurrence: None)
  Receive Date: 20100709
  Receipt Date: 20100629
  Transmission Date: 20110219
  Serious: Yes (Other)
  Sender: FDA-Public Use
  Company Number: B0663497A

PATIENT
  Age: 43 Year
  Sex: Male
  Weight: 60 kg

DRUGS (2)
  1. FRAXIPARINE [Suspect]
     Indication: CAROTID ARTERY THROMBOSIS
     Route: 065
  2. SUMATRIPTAN SUCCINATE [Suspect]
     Indication: PAIN
     Route: 065

REACTIONS (4)
  - ISCHAEMIC STROKE [None]
  - NEUROLOGICAL SYMPTOM [None]
  - PAIN [None]
  - VASOSPASM [None]
